FAERS Safety Report 23529691 (Version 3)
Quarter: 2025Q3

REPORT INFORMATION
  Report Type: Spontaneous
  Country: US (occurrence: US)
  Receive Date: 20240216
  Receipt Date: 20250820
  Transmission Date: 20251020
  Serious: Yes (Other)
  Sender: SANOFI AVENTIS
  Company Number: US-SA-SAC20240208001030

PATIENT
  Age: 35 Year
  Sex: Female

DRUGS (1)
  1. DUPIXENT [Suspect]
     Active Substance: DUPILUMAB
     Indication: Dermatitis atopic
     Dosage: 300 MG, QOW
     Route: 058

REACTIONS (7)
  - Serotonin syndrome [Unknown]
  - Confusional state [Unknown]
  - Agitation [Unknown]
  - Insomnia [Unknown]
  - Dermatitis [Unknown]
  - Dry skin [Unknown]
  - Pruritus [Unknown]
